FAERS Safety Report 14340197 (Version 7)
Quarter: 2018Q1

REPORT INFORMATION
  Report Type: Report from Study
  Country: None (occurrence: ES)
  Receive Date: 20171231
  Receipt Date: 20180222
  Transmission Date: 20180509
  Serious: Yes (Hospitalization, Other)
  Sender: FDA-Public Use
  Company Number: ES-ABBVIE-17K-144-2198575-00

PATIENT
  Age: 66 Year
  Sex: Female
  Weight: 59 kg

DRUGS (1)
  1. DUODOPA [Suspect]
     Active Substance: CARBIDOPA\LEVODOPA
     Indication: PARKINSON^S DISEASE
     Route: 050
     Dates: start: 20170330, end: 201801

REACTIONS (12)
  - Stoma site hypergranulation [Not Recovered/Not Resolved]
  - Intussusception [Recovering/Resolving]
  - Stoma site infection [Recovered/Resolved]
  - Medical device site discomfort [Unknown]
  - Medical device site pain [Unknown]
  - Intestinal obstruction [Recovered/Resolved]
  - Embedded device [Recovering/Resolving]
  - Intestinal ulcer [Recovered/Resolved]
  - Urinary retention [Recovered/Resolved]
  - Stoma site discharge [Not Recovered/Not Resolved]
  - Device issue [Recovering/Resolving]
  - Device dislocation [Recovering/Resolving]

NARRATIVE: CASE EVENT DATE: 201712
